FAERS Safety Report 5514241-3 (Version None)
Quarter: 2007Q4

REPORT INFORMATION
  Report Type: 
  Country: None (occurrence: None)
  Receive Date: 20071113
  Receipt Date: 20071031
  Transmission Date: 20080405
  Serious: Yes (Life-Threatening)
  Sender: FDA-Public Use
  Company Number: TN-ELI_LILLY_AND_COMPANY-TN200711000332

PATIENT
  Age: 52 Year
  Sex: Female

DRUGS (3)
  1. RALOXIFENE HYDROCHLORIDE [Suspect]
     Indication: OSTEOPOROSIS POSTMENOPAUSAL
     Dosage: UNK UNK, DAILY (1/D)
     Route: 048
     Dates: start: 20070701, end: 20070924
  2. DI-HYDAN [Concomitant]
     Indication: EPILEPSY
  3. CALPEROS D3 [Concomitant]
     Indication: OSTEOPOROSIS
     Dosage: UNK UNK, 2/D
     Route: 048

REACTIONS (3)
  - EPILEPSY [None]
  - FACE OEDEMA [None]
  - RASH MACULO-PAPULAR [None]
